FAERS Safety Report 8110300-X (Version None)
Quarter: 2012Q1

REPORT INFORMATION
  Report Type: 
  Country: None (occurrence: None)
  Receive Date: 20120202
  Receipt Date: 20120126
  Transmission Date: 20120608
  Serious: Yes (Hospitalization, Other)
  Sender: FDA-Public Use
  Company Number: CA-ROCHE-1022702

PATIENT
  Sex: Male
  Weight: 94.432 kg

DRUGS (7)
  1. DICLOFENAC [Concomitant]
  2. FOLIC ACID [Concomitant]
  3. HYDROMORPHONE HCL [Concomitant]
  4. METHOTREXATE [Concomitant]
  5. MULTI-VITAMIN SUPPLEMENT [Concomitant]
  6. ACTEMRA [Suspect]
     Indication: RHEUMATOID ARTHRITIS
     Route: 042
     Dates: start: 20110706, end: 20111124
  7. PERINDOPRIL ERBUMINE [Concomitant]

REACTIONS (4)
  - ABASIA [None]
  - JOINT RANGE OF MOTION DECREASED [None]
  - PAIN [None]
  - NERVOUS SYSTEM DISORDER [None]
